FAERS Safety Report 4698644-5 (Version None)
Quarter: 2005Q2

REPORT INFORMATION
  Report Type: 
  Country: None (occurrence: None)
  Receive Date: 20050622
  Receipt Date: 20040811
  Transmission Date: 20051028
  Serious: Yes (Life-Threatening)
  Sender: FDA-Public Use
  Company Number: 2004-BP-06679RO

PATIENT
  Age: 66 Year
  Sex: Male

DRUGS (1)
  1. LIDOCAINE VISCOUS [Suspect]
     Indication: ANAESTHESIA
     Dosage: 60 ML OF 2% SOLUTION IN SMALL SIPS (SEE TEXT), PO
     Route: 048
     Dates: start: 20040623, end: 20040623

REACTIONS (2)
  - BRADYCARDIA [None]
  - CARDIAC ARREST [None]
